FAERS Safety Report 25954905 (Version 1)
Quarter: 2025Q4

REPORT INFORMATION
  Report Type: Spontaneous
  Country: US (occurrence: US)
  Receive Date: 20251024
  Receipt Date: 20251024
  Transmission Date: 20260117
  Serious: No
  Sender: GLAXOSMITHKLINE
  Company Number: US-GSK-US2025131943

PATIENT
  Sex: Male

DRUGS (5)
  1. TRELEGY ELLIPTA [Interacting]
     Active Substance: FLUTICASONE FUROATE\UMECLIDINIUM BROMIDE\VILANTEROL TRIFENATATE
     Indication: Chronic obstructive pulmonary disease
     Dosage: 1 PUFF(S), QD,200/62.5/25MCG
  2. TRELEGY ELLIPTA [Interacting]
     Active Substance: FLUTICASONE FUROATE\UMECLIDINIUM BROMIDE\VILANTEROL TRIFENATATE
     Dosage: UNK UNK, QD,100/62.5/25MCG
  3. PRAVASTATIN [Concomitant]
     Active Substance: PRAVASTATIN
     Indication: Blood cholesterol
     Dosage: UNK
  4. FAMOTIDINE [Concomitant]
     Active Substance: FAMOTIDINE
     Indication: Gastrooesophageal reflux disease
     Dosage: 20 MG
  5. IPRATROPIUM BROMIDE [Interacting]
     Active Substance: IPRATROPIUM BROMIDE
     Indication: Sinus disorder
     Dosage: NASAL SPRAY, 2 SPRAYS EACH NOSTRIL TWICE DAILY

REACTIONS (9)
  - Dyspnoea [Unknown]
  - Gastrooesophageal reflux disease [Unknown]
  - Heart rate increased [Unknown]
  - Pain [Unknown]
  - Cough [Unknown]
  - Oxygen saturation decreased [Unknown]
  - Nasopharyngitis [Unknown]
  - Drug interaction [Unknown]
  - Overdose [Unknown]
